FAERS Safety Report 4854312-8 (Version None)
Quarter: 2005Q4

REPORT INFORMATION
  Report Type: 
  Country: None (occurrence: None)
  Receive Date: 20051215
  Receipt Date: 20051206
  Transmission Date: 20060501
  Serious: Yes (Hospitalization)
  Sender: FDA-Public Use
  Company Number: PHRM2005FR03223

PATIENT
  Age: 82 Year
  Sex: Male

DRUGS (10)
  1. NOCTAMID [Suspect]
     Indication: SENILE DEMENTIA
     Dosage: 1 MG, QD
     Route: 048
     Dates: start: 20050923, end: 20050928
  2. SEROPRAM [Suspect]
     Indication: SENILE DEMENTIA
     Dosage: 40 MG, QD
     Route: 048
     Dates: start: 20050928
  3. SEROPRAM [Suspect]
     Dosage: 40 MG, QD
     Route: 048
     Dates: start: 20050802, end: 20050901
  4. XANAX [Concomitant]
     Indication: SENILE DEMENTIA
     Dosage: 0.5 MG, QD
     Route: 048
     Dates: start: 20050928
  5. CASODEX [Concomitant]
     Indication: PROSTATE CANCER
  6. VALIUM [Suspect]
     Indication: SENILE DEMENTIA
     Dosage: 20 DF, QD
     Route: 048
     Dates: start: 20050917, end: 20050928
  7. STILNOX /SCH/ [Suspect]
     Indication: SENILE DEMENTIA
     Dosage: 10 MG, QD
     Route: 048
     Dates: start: 20050928
  8. STILNOX /SCH/ [Suspect]
     Dosage: 10 MG, QD
     Route: 048
     Dates: start: 20050802, end: 20050901
  9. LEPONEX [Suspect]
     Indication: SENILE DEMENTIA
     Dosage: 25 MG, QD
     Route: 048
     Dates: start: 20050802, end: 20050901
  10. LEPONEX [Suspect]
     Dosage: 25 MG, QD
     Route: 048
     Dates: start: 20050928

REACTIONS (9)
  - CONDITION AGGRAVATED [None]
  - CSF CELL COUNT INCREASED [None]
  - CSF LYMPHOCYTE COUNT INCREASED [None]
  - CSF PROTEIN INCREASED [None]
  - INFLAMMATION [None]
  - LUMBAR PUNCTURE [None]
  - MENINGITIS LISTERIA [None]
  - MYOCLONUS [None]
  - RED BLOOD CELLS CSF POSITIVE [None]
